FAERS Safety Report 9706963 (Version 2)
Quarter: 2013Q4

REPORT INFORMATION
  Report Type: Spontaneous
  Country: US (occurrence: US)
  Receive Date: 20131125
  Receipt Date: 20131125
  Transmission Date: 20140711
  Serious: No
  Sender: FDA-Public Use
  Company Number: US-PFIZER INC-2013220185

PATIENT
  Age: 33 Year
  Sex: Male

DRUGS (1)
  1. XALKORI [Suspect]
     Indication: NON-SMALL CELL LUNG CANCER STAGE IV
     Dosage: 250 MG, 1X/DAY
     Dates: start: 20130726

REACTIONS (2)
  - Disease progression [Unknown]
  - Non-small cell lung cancer stage IV [Unknown]
